FAERS Safety Report 5994418-3 (Version None)
Quarter: 2008Q4

REPORT INFORMATION
  Report Type: 
  Country: None (occurrence: None)
  Receive Date: 20081212
  Receipt Date: 20080908
  Transmission Date: 20090506
  Serious: No
  Sender: FDA-Public Use
  Company Number: US-ABBOTT-08P-163-0475192-00

PATIENT
  Sex: Male
  Weight: 81.72 kg

DRUGS (7)
  1. HUMIRA [Suspect]
     Indication: COLITIS
     Route: 050
     Dates: start: 20080401, end: 20080818
  2. HUMIRA [Suspect]
     Route: 050
     Dates: start: 20080818
  3. BALSALAZIDE DISODIUM [Concomitant]
     Indication: COLITIS
     Route: 048
  4. PREDNISONE TAB [Concomitant]
     Indication: COLITIS
     Route: 048
  5. ERGOCALCIFEROL [Concomitant]
     Indication: VITAMIN SUPPLEMENTATION
     Route: 048
  6. CALCIUM [Concomitant]
     Indication: MINERAL SUPPLEMENTATION
     Route: 048
  7. FOLIC ACID [Concomitant]
     Indication: VITAMIN SUPPLEMENTATION
     Route: 048

REACTIONS (2)
  - ACCIDENTAL EXPOSURE [None]
  - INJECTION SITE PAIN [None]
